FAERS Safety Report 6668878-9 (Version None)
Quarter: 2010Q2

REPORT INFORMATION
  Report Type: 
  Country: None (occurrence: None)
  Receive Date: 20100406
  Receipt Date: 20100329
  Transmission Date: 20101027
  Serious: Yes (Other)
  Sender: FDA-Public Use
  Company Number: FR-ROCHE-694777

PATIENT
  Sex: Female

DRUGS (5)
  1. HERCEPTIN [Suspect]
     Indication: BREAST CANCER
     Route: 065
  2. TAXOTERE [Suspect]
     Indication: BREAST CANCER
     Dosage: FORM : CONCENTRATE FOR SOLUTION FOR INFUSION
     Route: 042
  3. CARBOPLATIN [Suspect]
     Indication: BREAST CANCER
     Dosage: FORM ; INFUSION
     Route: 042
  4. ERCEFURYL [Concomitant]
  5. ZOPHREN [Concomitant]
     Dosage: DRUG NAME REPORTED AS ONDANSETRON HYDROCHLORDE

REACTIONS (1)
  - THROMBOCYTOPENIA [None]
